FAERS Safety Report 5023528-2 (Version None)
Quarter: 2006Q2

REPORT INFORMATION
  Report Type: 
  Country: None (occurrence: None)
  Receive Date: 20060612
  Receipt Date: 20060601
  Transmission Date: 20061013
  Serious: Yes (Other)
  Sender: FDA-Public Use
  Company Number: HK-GLAXOSMITHKLINE-B0426634A

PATIENT
  Age: 80 Year
  Sex: Male
  Weight: 80 kg

DRUGS (2)
  1. AVANDIA [Suspect]
     Indication: DIABETES MELLITUS
     Dosage: 2MG TWICE PER DAY
     Route: 048
     Dates: start: 20051201, end: 20060521
  2. UNKNOWN ANTI-DIABETIC MEDICATION [Concomitant]
     Indication: DIABETES MELLITUS
     Route: 065

REACTIONS (3)
  - ANAEMIA [None]
  - BLOOD IRON DECREASED [None]
  - PNEUMONIA [None]
